FAERS Safety Report 5132855-X (Version None)
Quarter: 2006Q4

REPORT INFORMATION
  Report Type: 
  Country: None (occurrence: None)
  Receive Date: 20061020
  Receipt Date: 20061020
  Transmission Date: 20070319
  Serious: Yes (Other)
  Sender: FDA-Public Use
  Company Number: None

PATIENT
  Sex: Female

DRUGS (1)
  1. SEPTOCAINE [Suspect]
     Route: 004
     Dates: start: 20051114

REACTIONS (5)
  - GLOSSODYNIA [None]
  - HYPOAESTHESIA ORAL [None]
  - MEDICATION ERROR [None]
  - NERVE INJURY [None]
  - REFUSAL OF TREATMENT BY PATIENT [None]
